FAERS Safety Report 11384528 (Version 1)
Quarter: 2015Q3

REPORT INFORMATION
  Report Type: Spontaneous
  Country: US (occurrence: US)
  Receive Date: 20150811
  Receipt Date: 20150811
  Transmission Date: 20151125
  Serious: Yes (Hospitalization)
  Sender: FDA-Public Use
  Company Number: US-ELI_LILLY_AND_COMPANY-US201104000141

PATIENT
  Age: 39 Year
  Sex: Female

DRUGS (2)
  1. TREPROSTINIL [Concomitant]
     Active Substance: TREPROSTINIL
     Dosage: 6 DF, UNK
     Route: 055
     Dates: start: 20110208
  2. ADCIRCA [Suspect]
     Active Substance: TADALAFIL
     Dosage: 1 DF, UNK

REACTIONS (1)
  - Chest pain [Not Recovered/Not Resolved]

NARRATIVE: CASE EVENT DATE: 20110208
